FAERS Safety Report 6927991-9 (Version None)
Quarter: 2010Q3

REPORT INFORMATION
  Report Type: 
  Country: None (occurrence: None)
  Receive Date: 20100812
  Receipt Date: 20100730
  Transmission Date: 20110219
  Serious: Yes (Hospitalization, Other)
  Sender: FDA-Public Use
  Company Number: 006727

PATIENT
  Sex: Male

DRUGS (6)
  1. CIMZIA [Suspect]
     Indication: CROHN'S DISEASE
     Dosage: (400 MG 1X/MONTH SUBCUTANEOUS)
     Route: 058
     Dates: start: 20090722
  2. PLAVIX [Suspect]
     Indication: ANTICOAGULANT THERAPY
     Dates: end: 20100125
  3. PREDNISONE [Concomitant]
  4. INSULIN [Concomitant]
  5. LEVAQUIN [Concomitant]
  6. CALCIUM [Concomitant]

REACTIONS (6)
  - DIARRHOEA [None]
  - HAEMOGLOBIN DECREASED [None]
  - INTESTINAL HAEMORRHAGE [None]
  - MUSCULAR WEAKNESS [None]
  - OSTEOPENIA [None]
  - SALMONELLA TEST POSITIVE [None]
